FAERS Safety Report 13385052 (Version 6)
Quarter: 2017Q2

REPORT INFORMATION
  Report Type: Spontaneous
  Country: US (occurrence: US)
  Receive Date: 20170329
  Receipt Date: 20170428
  Transmission Date: 20170830
  Serious: Yes (Hospitalization)
  Sender: FDA-Public Use
  Company Number: US-VIFOR (INTERNATIONAL) INC.-VIT-2017-03299

PATIENT
  Sex: Female

DRUGS (33)
  1. VELTASSA [Suspect]
     Active Substance: PATIROMER
     Route: 048
  2. NEXIUM [Concomitant]
     Active Substance: ESOMEPRAZOLE MAGNESIUM
  3. AMITRIPTYLIN [Concomitant]
     Active Substance: AMITRIPTYLINE
  4. LIDOCAINE. [Concomitant]
     Active Substance: LIDOCAINE
  5. LEVOFLOXACIN. [Concomitant]
     Active Substance: LEVOFLOXACIN
  6. POLYETHYLENE GLYCOL [Concomitant]
     Active Substance: POLYETHYLENE GLYCOLS
  7. EXJADE [Concomitant]
     Active Substance: DEFERASIROX
  8. SEVELAMER CARBONATE. [Concomitant]
     Active Substance: SEVELAMER CARBONATE
  9. CLOPIDOGREL [Concomitant]
     Active Substance: CLOPIDOGREL BISULFATE
  10. VENTOLIN HFA [Concomitant]
     Active Substance: ALBUTEROL SULFATE
  11. PROCRIT [Concomitant]
     Active Substance: ERYTHROPOIETIN
  12. LANTUS [Concomitant]
     Active Substance: INSULIN GLARGINE
  13. GLYCERYL TRINITRATE [Concomitant]
     Active Substance: NITROGLYCERIN
  14. PARACETAMOL [Concomitant]
     Active Substance: ACETAMINOPHEN
  15. FUROSEMIDE. [Concomitant]
     Active Substance: FUROSEMIDE
  16. ERGOCALCIFEROL. [Concomitant]
     Active Substance: ERGOCALCIFEROL
  17. PROAIR HFA [Concomitant]
     Active Substance: ALBUTEROL SULFATE
  18. TRIAMCINOLONE ACETONIDE. [Concomitant]
     Active Substance: TRIAMCINOLONE ACETONIDE
  19. CALCITRIOL. [Concomitant]
     Active Substance: CALCITRIOL
  20. NIFEDIPINE. [Concomitant]
     Active Substance: NIFEDIPINE
  21. CRESTOR [Concomitant]
     Active Substance: ROSUVASTATIN CALCIUM
  22. ULORIC [Concomitant]
     Active Substance: FEBUXOSTAT
  23. DIOVAN [Concomitant]
     Active Substance: VALSARTAN
  24. DIPHENHYDRAMINE HYDROCHLORIDE. [Concomitant]
     Active Substance: DIPHENHYDRAMINE HYDROCHLORIDE
  25. ACETYLSALICYLIC ACID [Concomitant]
     Active Substance: ASPIRIN
  26. GABAPENTIN. [Concomitant]
     Active Substance: GABAPENTIN
  27. VELTASSA [Suspect]
     Active Substance: PATIROMER
     Indication: HYPERKALAEMIA
     Route: 048
     Dates: start: 20170202, end: 2017
  28. PREDNISONE. [Concomitant]
     Active Substance: PREDNISONE
  29. METOPROLOL TARTRATE. [Concomitant]
     Active Substance: METOPROLOL TARTRATE
  30. DOCUSATE SODIUM. [Concomitant]
     Active Substance: DOCUSATE SODIUM
  31. GENTAMICIN SULFATE. [Concomitant]
     Active Substance: GENTAMICIN SULFATE
  32. EPOETIN ALFA [Concomitant]
     Active Substance: ERYTHROPOIETIN
  33. CODEINE PHOSPHATE [Concomitant]
     Active Substance: CODEINE PHOSPHATE

REACTIONS (6)
  - Pneumonia [Unknown]
  - Blood potassium decreased [Unknown]
  - Myocardial infarction [Unknown]
  - Coronary artery occlusion [Unknown]
  - Diarrhoea [Unknown]
  - Blood potassium increased [Unknown]

NARRATIVE: CASE EVENT DATE: 2017
